FAERS Safety Report 6064714-2 (Version None)
Quarter: 2009Q1

REPORT INFORMATION
  Report Type: 
  Country: None (occurrence: None)
  Receive Date: 20090204
  Receipt Date: 20080721
  Transmission Date: 20090719
  Serious: No
  Sender: FDA-Public Use
  Company Number: A0738652A

PATIENT
  Age: 54 Year
  Sex: Male

DRUGS (4)
  1. ARIXTRA [Suspect]
     Route: 058
     Dates: start: 20080709, end: 20080715
  2. MILK OF MAGNESIA [Concomitant]
  3. PRILOSEC [Concomitant]
  4. HYDROCODONE [Concomitant]

REACTIONS (5)
  - CONSTIPATION [None]
  - ERYTHEMA [None]
  - FAECES DISCOLOURED [None]
  - FEELING HOT [None]
  - SKIN DISCOLOURATION [None]
